FAERS Safety Report 15077129 (Version 1)
Quarter: 2018Q2

REPORT INFORMATION
  Report Type: Report from Study
  Country: KR (occurrence: KR)
  Receive Date: 20180627
  Receipt Date: 20180627
  Transmission Date: 20180711
  Serious: Yes (Other)
  Sender: FDA-Public Use
  Company Number: KR-MYLANLABS-2018M1045769

PATIENT
  Age: 53 Year
  Sex: Male

DRUGS (6)
  1. MYCOPHENOLATE MOFETIL. [Suspect]
     Active Substance: MYCOPHENOLATE MOFETIL
     Indication: IMMUNOSUPPRESSANT DRUG THERAPY
     Dosage: ACCUMULATIVE DOSE 173566MG AND AND AVERAGE DOSE WAS 54.5MG/DAY
     Route: 065
  2. BASILIXIMAB [Suspect]
     Active Substance: BASILIXIMAB
     Indication: IMMUNOSUPPRESSANT DRUG THERAPY
     Dosage: ONE WEEK OF DAILY IV BASILIXIMAB
     Route: 042
  3. CYCLOSPORIN [Suspect]
     Active Substance: CYCLOSPORINE
     Indication: IMMUNOSUPPRESSANT DRUG THERAPY
     Dosage: ACCUMULATIVE DOSE 16027MG AND AVERAGE DOSE WAS 6.5 MG/DAY
     Route: 065
  4. TACROLIMUS. [Suspect]
     Active Substance: TACROLIMUS
     Indication: IMMUNOSUPPRESSANT DRUG THERAPY
     Dosage: ACCUMULATIVE DOSE 8081MG AND AVERAGE DOSE WAS 2.4 MG/DAY
     Route: 065
  5. AZATHIOPRINE. [Suspect]
     Active Substance: AZATHIOPRINE
     Indication: IMMUNOSUPPRESSANT DRUG THERAPY
     Dosage: ACCUMULATIVE DOSE 96800MG AND AVERAGE DOSE WAS 53.2 MG/DAY
     Route: 065
  6. SIROLIMUS. [Suspect]
     Active Substance: SIROLIMUS
     Indication: IMMUNOSUPPRESSANT DRUG THERAPY
     Dosage: ACCUMULATIVE DOSE 2393MG AND AVERAGE DOSE WAS 1.7 MG/DAY
     Route: 065

REACTIONS (2)
  - Squamous cell carcinoma [Recovered/Resolved]
  - Nasal sinus cancer [Recovered/Resolved]
